FAERS Safety Report 16740279 (Version 1)
Quarter: 2019Q4

REPORT INFORMATION
  Report Type: Spontaneous
  Country: US (occurrence: US)
  Receive Date: 20190823
  Receipt Date: 20190823
  Transmission Date: 20200122
  Serious: Yes (Hospitalization)
  Sender: FDA-Public Use
  Company Number: None

PATIENT
  Age: 14 Year
  Sex: Female

DRUGS (13)
  1. CALCITROL SOL 1MCG / ML [Concomitant]
  2. PROCRIT [Suspect]
     Active Substance: ERYTHROPOIETIN
     Indication: ANAEMIA
     Dosage: ?          OTHER FREQUENCY:WEEKLY;?
     Route: 058
     Dates: start: 20190128
  3. PROCRIT [Suspect]
     Active Substance: ERYTHROPOIETIN
     Indication: CHRONIC KIDNEY DISEASE
     Dosage: ?          OTHER FREQUENCY:WEEKLY;?
     Route: 058
     Dates: start: 20190128
  4. AMLODIPINE TAB 5 MG [Concomitant]
  5. NORETHINDRON TAB 0.35 MG [Concomitant]
  6. EPOGEN INJ 20000/ML [Concomitant]
  7. PROPRANOLOL SOL 40 MG / 5 ML [Concomitant]
  8. MYCOPHENOLAST SUS 200 MG/ML [Concomitant]
  9. SULFATRIM PD SUS 200-40/5 [Concomitant]
  10. CEPHALEXIN SUS 250/5ML [Concomitant]
  11. FAMOTIDINE SUS 40 MG / 5 ML [Concomitant]
  12. NOVAFERRUM DRO 15 MG/ML [Concomitant]
  13. RAPAMUNE SOL 1 MG/ML [Concomitant]

REACTIONS (1)
  - Blood creatinine increased [None]
